FAERS Safety Report 22846168 (Version 2)
Quarter: 2023Q4

REPORT INFORMATION
  Report Type: Spontaneous
  Country: US (occurrence: US)
  Receive Date: 20230821
  Receipt Date: 20231009
  Transmission Date: 20240109
  Serious: No
  Sender: FDA-Public Use
  Company Number: US-BRISTOL-MYERS SQUIBB COMPANY-2023-117644

PATIENT
  Age: 75 Year
  Sex: Female

DRUGS (1)
  1. ZEPOSIA [Suspect]
     Active Substance: OZANIMOD HYDROCHLORIDE
     Indication: Colitis ulcerative
     Dosage: DOSE AND FREQ : 1 TABLET DAILY
     Route: 048
     Dates: start: 20230905

REACTIONS (2)
  - Alopecia [Unknown]
  - Peripheral swelling [Unknown]
